FAERS Safety Report 4586458-6 (Version None)
Quarter: 2005Q1

REPORT INFORMATION
  Report Type: 
  Country: None (occurrence: None)
  Receive Date: 20050218
  Receipt Date: 20050131
  Transmission Date: 20050727
  Serious: Yes (Other)
  Sender: FDA-Public Use
  Company Number: 200510456JP

PATIENT
  Age: 60 Year
  Sex: Male

DRUGS (1)
  1. TAXOTERE [Suspect]
     Indication: GASTRIC CANCER
     Route: 041

REACTIONS (1)
  - HICCUPS [None]
